FAERS Safety Report 8378033-2 (Version None)
Quarter: 2012Q2

REPORT INFORMATION
  Report Type: 
  Country: None (occurrence: None)
  Receive Date: 20120522
  Receipt Date: 20120509
  Transmission Date: 20120825
  Serious: No
  Sender: FDA-Public Use
  Company Number: US-ASTRAZENECA-2012SE29884

PATIENT
  Age: 46 Year
  Sex: Male

DRUGS (3)
  1. TOPROL-XL [Suspect]
     Route: 048
  2. TOPROL-XL [Suspect]
     Indication: HYPERTENSION
     Dosage: GENERIC
     Route: 048
     Dates: start: 20060101
  3. DIOVAN [Suspect]
     Route: 048

REACTIONS (3)
  - DIZZINESS [None]
  - OFF LABEL USE [None]
  - PALPITATIONS [None]
